FAERS Safety Report 25691101 (Version 1)
Quarter: 2025Q3

REPORT INFORMATION
  Report Type: Spontaneous
  Country: US (occurrence: US)
  Receive Date: 20250818
  Receipt Date: 20250818
  Transmission Date: 20251021
  Serious: Yes (Disabling)
  Sender: PFIZER
  Company Number: US-MLMSERVICE-20250806-PI605531-00270-1

PATIENT
  Age: 64 Year
  Sex: Male

DRUGS (6)
  1. METHYLPREDNISOLONE ACETATE [Suspect]
     Active Substance: METHYLPREDNISOLONE ACETATE
     Indication: Steroid therapy
     Route: 008
  2. SODIUM CHLORIDE [Concomitant]
     Active Substance: SODIUM CHLORIDE
     Route: 008
  3. PREDNISONE [Concomitant]
     Active Substance: PREDNISONE
     Indication: Sarcoidosis
     Dosage: 20 MG, 1X/DAY
     Route: 048
  4. METFORMIN [Concomitant]
     Active Substance: METFORMIN HYDROCHLORIDE
     Indication: Diabetes mellitus
     Dosage: 1000 MG, 2X/DAY
  5. IBUPROFEN [Concomitant]
     Active Substance: IBUPROFEN
     Indication: Pain management
  6. OXYGEN [Concomitant]
     Active Substance: OXYGEN
     Indication: Oxygen therapy

REACTIONS (5)
  - Epidural lipomatosis [Unknown]
  - Spinal stenosis [Unknown]
  - Condition aggravated [Unknown]
  - Peroneal nerve palsy [Unknown]
  - Contraindicated product administered [Unknown]
